FAERS Safety Report 23726962 (Version 1)
Quarter: 2024Q2

REPORT INFORMATION
  Report Type: Spontaneous
  Country: US (occurrence: None)
  Receive Date: 20240409
  Receipt Date: 20240409
  Transmission Date: 20240716
  Serious: No
  Sender: FDA-Public Use
  Company Number: None

PATIENT
  Age: 73 Year
  Sex: Male

DRUGS (7)
  1. ENVARSUS XR [Suspect]
     Active Substance: TACROLIMUS
     Indication: Lung transplant
     Dosage: FREQUENCY : DAILY;?
     Route: 048
     Dates: start: 20191230, end: 20240409
  2. ATOVAQUONE [Concomitant]
     Active Substance: ATOVAQUONE
     Dates: start: 20240408
  3. MYCOPHENOLIC ACID [Concomitant]
     Active Substance: MYCOPHENOLIC ACID
     Dates: start: 20230320
  4. PREDNISONE [Concomitant]
     Active Substance: PREDNISONE
  5. SULFAMETHOXAZOLE\TRIMETHOPRIM [Concomitant]
     Active Substance: SULFAMETHOXAZOLE\TRIMETHOPRIM
  6. IRON\VITAMINS NOS [Concomitant]
     Active Substance: IRON\VITAMINS
     Dates: start: 20220526
  7. VALGANCICLOVIR [Concomitant]
     Active Substance: VALGANCICLOVIR
     Dates: start: 20220908

REACTIONS (2)
  - Throat cancer [None]
  - Dysphagia [None]

NARRATIVE: CASE EVENT DATE: 20240409
